FAERS Safety Report 7180201-2 (Version None)
Quarter: 2010Q4

REPORT INFORMATION
  Report Type: 
  Country: None (occurrence: None)
  Receive Date: 20101208
  Receipt Date: 20101117
  Transmission Date: 20110411
  Serious: Yes (Life-Threatening, Other)
  Sender: FDA-Public Use
  Company Number: US201011002140

PATIENT

DRUGS (1)
  1. ZYPREXA [Suspect]
     Dosage: 405 MG, MONTHLY (1/M),INTRAMUSCULAR
     Route: 030

REACTIONS (5)
  - DELIRIUM [None]
  - DROOLING [None]
  - DYSARTHRIA [None]
  - SEDATION [None]
  - SOMNOLENCE [None]
